FAERS Safety Report 6662858-5 (Version None)
Quarter: 2010Q2

REPORT INFORMATION
  Report Type: 
  Country: None (occurrence: None)
  Receive Date: 20100401
  Receipt Date: 20100324
  Transmission Date: 20101027
  Serious: No
  Sender: FDA-Public Use
  Company Number: 2010BI006379

PATIENT
  Age: 30 Year
  Sex: Female

DRUGS (2)
  1. TYSABRI [Suspect]
     Indication: MULTIPLE SCLEROSIS
     Route: 042
     Dates: start: 20070411, end: 20090325
  2. TYSABRI [Suspect]
     Route: 042
     Dates: start: 20100216, end: 20100216

REACTIONS (1)
  - MULTIPLE SCLEROSIS RELAPSE [None]
